FAERS Safety Report 8491246-4 (Version None)
Quarter: 2012Q3

REPORT INFORMATION
  Report Type: 
  Country: None (occurrence: None)
  Receive Date: 20120706
  Receipt Date: 20120702
  Transmission Date: 20120928
  Serious: Yes (Hospitalization, Other)
  Sender: FDA-Public Use
  Company Number: PHHY2012JP057490

PATIENT
  Sex: Female

DRUGS (4)
  1. EXELON [Suspect]
     Dosage: 13.5 MG/24H
     Route: 062
     Dates: start: 20120111, end: 20120201
  2. MEMANTINE HYDROCHLORIDE [Concomitant]
     Indication: DEMENTIA ALZHEIMER'S TYPE
     Dosage: 20 MG, UNK
     Route: 048
     Dates: end: 20120201
  3. EXELON [Suspect]
     Indication: DEMENTIA ALZHEIMER'S TYPE
     Dosage: 4.5 MG/24H
     Route: 062
     Dates: start: 20111115, end: 20111212
  4. EXELON [Suspect]
     Dosage: 9 MG/24H
     Route: 062
     Dates: start: 20111213, end: 20120110

REACTIONS (2)
  - LOWER LIMB FRACTURE [None]
  - FALL [None]
